FAERS Safety Report 12747421 (Version 1)
Quarter: 2016Q3

REPORT INFORMATION
  Report Type: Spontaneous
  Country: US (occurrence: US)
  Receive Date: 20160915
  Receipt Date: 20160915
  Transmission Date: 20161109
  Serious: No
  Sender: FDA-Public Use
  Company Number: US-JAZZ-2016-US-009742

PATIENT
  Sex: Female

DRUGS (14)
  1. TRAMADOL HCL [Concomitant]
     Active Substance: TRAMADOL HYDROCHLORIDE
  2. LEVOTHYROXINE. [Concomitant]
     Active Substance: LEVOTHYROXINE
  3. XYREM [Suspect]
     Active Substance: SODIUM OXYBATE
     Indication: NARCOLEPSY
     Dosage: 2.25 G, BID
     Route: 048
     Dates: start: 201306, end: 201306
  4. CYMBALTA [Concomitant]
     Active Substance: DULOXETINE HYDROCHLORIDE
  5. ESTRACE [Concomitant]
     Active Substance: ESTRADIOL
  6. SAVELLA [Concomitant]
     Active Substance: MILNACIPRAN HYDROCHLORIDE
  7. HYDROCODONE/ACETAMINOPHEN [Concomitant]
     Active Substance: ACETAMINOPHEN\HYDROCODONE
  8. DEPAKOTE [Concomitant]
     Active Substance: DIVALPROEX SODIUM
  9. GABAPENTIN. [Concomitant]
     Active Substance: GABAPENTIN
  10. RELPAX [Concomitant]
     Active Substance: ELETRIPTAN HYDROBROMIDE
  11. XYREM [Suspect]
     Active Substance: SODIUM OXYBATE
     Dosage: DOSE ADJUSTMENTS
     Route: 048
     Dates: start: 2013, end: 2015
  12. XYREM [Suspect]
     Active Substance: SODIUM OXYBATE
     Dosage: 4.5 G, BID
     Route: 048
     Dates: start: 201506
  13. TRAMADOL. [Suspect]
     Active Substance: TRAMADOL
     Indication: PRODUCT USED FOR UNKNOWN INDICATION
  14. PROVIGIL [Concomitant]
     Active Substance: MODAFINIL

REACTIONS (3)
  - Wrong technique in product usage process [Unknown]
  - Arthritis [Not Recovered/Not Resolved]
  - Sedation [Unknown]
